FAERS Safety Report 5531144-9 (Version None)
Quarter: 2007Q4

REPORT INFORMATION
  Report Type: 
  Country: None (occurrence: None)
  Receive Date: 20071130
  Receipt Date: 20071120
  Transmission Date: 20080405
  Serious: Yes (Hospitalization)
  Sender: FDA-Public Use
  Company Number: KR-PFIZER INC-2007098702

PATIENT
  Sex: Male

DRUGS (1)
  1. LYRICA [Suspect]
     Indication: CONVULSION
     Dosage: DAILY DOSE:300MG
     Route: 048

REACTIONS (1)
  - CEREBROVASCULAR ACCIDENT [None]
